FAERS Safety Report 6526158-6 (Version None)
Quarter: 2009Q4

REPORT INFORMATION
  Report Type: 
  Country: None (occurrence: None)
  Receive Date: 20091228
  Receipt Date: 20091215
  Transmission Date: 20100525
  Serious: Yes (Hospitalization)
  Sender: FDA-Public Use
  Company Number: 232422K09USA

PATIENT
  Age: 54 Year
  Sex: Female
  Weight: 60 kg

DRUGS (4)
  1. REBIF [Suspect]
  2. NEURONTIN [Concomitant]
  3. METFORMIN HCL [Concomitant]
  4. EXFORGE [Concomitant]

REACTIONS (5)
  - CERVICAL SPINAL STENOSIS [None]
  - INTERVERTEBRAL DISC PROTRUSION [None]
  - LIVER FUNCTION TEST ABNORMAL [None]
  - SPINAL OSTEOARTHRITIS [None]
  - TRIGEMINAL NEURALGIA [None]
